FAERS Safety Report 18608788 (Version 2)
Quarter: 2021Q1

REPORT INFORMATION
  Report Type: Spontaneous
  Country: JP (occurrence: JP)
  Receive Date: 20201213
  Receipt Date: 20210127
  Transmission Date: 20210419
  Serious: Yes (Hospitalization)
  Sender: FDA-Public Use
  Company Number: JP-JNJFOC-20201221225

PATIENT

DRUGS (1)
  1. ITRIZOLE [Suspect]
     Active Substance: ITRACONAZOLE
     Indication: OESOPHAGEAL CANDIDIASIS
     Dosage: DOSE UNKNOWN
     Route: 048

REACTIONS (3)
  - Tinea pedis [Unknown]
  - Anal tinea [Unknown]
  - Hospitalisation [Unknown]
